FAERS Safety Report 9968063 (Version 2)
Quarter: 2014Q1

REPORT INFORMATION
  Report Type: Report from Study
  Country: US (occurrence: US)
  Receive Date: 20140306
  Receipt Date: 20140306
  Transmission Date: 20141002
  Serious: Yes (Hospitalization, Other)
  Sender: FDA-Public Use
  Company Number: US-ABBVIE-13P-163-1141215-00

PATIENT
  Sex: Male
  Weight: 154.81 kg

DRUGS (3)
  1. HUMIRA [Suspect]
     Route: 058
  2. NAPROXEN DR [Concomitant]
     Indication: PRODUCT USED FOR UNKNOWN INDICATION
  3. OSTEO BI-FLEX CAP DBL ST [Concomitant]
     Indication: PRODUCT USED FOR UNKNOWN INDICATION

REACTIONS (2)
  - Staphylococcal infection [Unknown]
  - Abscess [Unknown]
